FAERS Safety Report 5043048-9 (Version None)
Quarter: 2006Q2

REPORT INFORMATION
  Report Type: 
  Country: None (occurrence: None)
  Receive Date: 20060628
  Receipt Date: 20060621
  Transmission Date: 20061013
  Serious: Yes (Life-Threatening)
  Sender: FDA-Public Use
  Company Number: 200612548GDS

PATIENT
  Age: 58 Year
  Sex: Male

DRUGS (7)
  1. NIFEDIPINE [Suspect]
     Indication: HYPERTENSION
     Dosage: 60 MG, TOTAL DAILY, ORAL
     Route: 048
     Dates: start: 20051018, end: 20051031
  2. AMLODIPINE BESYLATE [Suspect]
     Indication: HYPERTENSION
     Dosage: 10 MG, TOTAL DAILY, ORAL
     Route: 048
     Dates: start: 20051017, end: 20051031
  3. DOXAZOSIN MESYLATE [Suspect]
     Indication: HYPERTENSION
     Dosage: 8 MG, TOTAL DAILY, ORAL
     Route: 048
     Dates: start: 20051021, end: 20051031
  4. DILTIAZEM HYDROCHLORIDE [Suspect]
     Indication: HYPERTENSION
     Dosage: 36 MG, TOTAL DAILY, INTRAVENOUS
     Route: 042
     Dates: start: 20051031
  5. PERDIPINE (NICARDIPINE HYDROCHLORIDE) [Suspect]
     Indication: HYPERTENSION
     Dosage: 500 MG, TOTAL DAILY, INTRAVENOUS
     Route: 042
     Dates: start: 20051017, end: 20051031
  6. CALSLOT (MANIDIPINE HYDROCHLORIDE) [Suspect]
     Indication: HYPERTENSION
     Dosage: 40 MG, TOTAL DAILY, ORAL
     Route: 048
     Dates: start: 20051021, end: 20051031
  7. CARVEDILOL [Suspect]
     Indication: HYPERTENSION
     Dosage: 20 MG, TOTAL DAILY, ORAL
     Route: 048
     Dates: start: 20051018, end: 20051031

REACTIONS (18)
  - ANAPHYLACTIC SHOCK [None]
  - BRADYCARDIA [None]
  - CARDIAC ARREST [None]
  - CHOLECYSTITIS [None]
  - CHOLELITHIASIS [None]
  - COMA [None]
  - CONDITION AGGRAVATED [None]
  - DRUG INTERACTION POTENTIATION [None]
  - DRUG LEVEL INCREASED [None]
  - ELECTROMECHANICAL DISSOCIATION [None]
  - GALLBLADDER ENLARGEMENT [None]
  - HYPONATRAEMIA [None]
  - HYPOTENSION [None]
  - PHLEBITIS [None]
  - RENAL FAILURE CHRONIC [None]
  - RESTLESSNESS [None]
  - SINUS ARREST [None]
  - THERAPY NON-RESPONDER [None]
